FAERS Safety Report 7372697-8 (Version None)
Quarter: 2011Q1

REPORT INFORMATION
  Report Type: 
  Country: None (occurrence: None)
  Receive Date: 20110316
  Receipt Date: 20110310
  Transmission Date: 20110831
  Serious: Yes (Hospitalization, Disabling, Other)
  Sender: FDA-Public Use
  Company Number: 2009SP028658

PATIENT
  Age: 22 Year
  Sex: Female
  Weight: 65.7716 kg

DRUGS (3)
  1. MULTI-VITAMIN [Concomitant]
  2. ACETAMINOPHEN [Concomitant]
  3. NUVARING [Suspect]
     Indication: CONTRACEPTION
     Dates: start: 20021201, end: 20071101

REACTIONS (30)
  - APRAXIA [None]
  - BRAIN OEDEMA [None]
  - CEREBRAL INFARCTION [None]
  - URINARY TRACT INFECTION [None]
  - PNEUMONIA [None]
  - MENTAL DISORDER [None]
  - CEREBROVASCULAR ACCIDENT [None]
  - ISCHAEMIC STROKE [None]
  - RESPIRATORY FAILURE [None]
  - CARDIOLIPIN ANTIBODY POSITIVE [None]
  - EMOTIONAL DISORDER [None]
  - DYSPHAGIA [None]
  - IMPAIRED WORK ABILITY [None]
  - EDUCATIONAL PROBLEM [None]
  - RHABDOMYOLYSIS [None]
  - ADJUSTMENT DISORDER [None]
  - HEAD INJURY [None]
  - APHASIA [None]
  - POST-TRAUMATIC STRESS DISORDER [None]
  - SUICIDAL BEHAVIOUR [None]
  - FALL [None]
  - INSOMNIA [None]
  - CONVULSION [None]
  - SEXUAL ABUSE [None]
  - UNRESPONSIVE TO STIMULI [None]
  - CAROTID ARTERY OCCLUSION [None]
  - HYPERTENSION [None]
  - HYPERCOAGULATION [None]
  - COGNITIVE DISORDER [None]
  - BRAIN HERNIATION [None]
